FAERS Safety Report 15325534 (Version 1)
Quarter: 2018Q3

REPORT INFORMATION
  Report Type: Report from Study
  Country: US (occurrence: US)
  Receive Date: 20180828
  Receipt Date: 20180828
  Transmission Date: 20181010
  Serious: Yes (Other)
  Sender: FDA-Public Use
  Company Number: US-PFIZER INC-2018342298

PATIENT
  Age: 72 Year
  Sex: Male
  Weight: 72.11 kg

DRUGS (3)
  1. TREPROSTINIL SODIUM [Suspect]
     Active Substance: TREPROSTINIL SODIUM
     Indication: PULMONARY HYPERTENSION
     Dosage: UNK (18?54 MICROGRAMS), FOUR TIMES DAILY
     Route: 055
     Dates: start: 20170831
  2. SILDENAFIL CITRATE. [Suspect]
     Active Substance: SILDENAFIL CITRATE
     Dosage: UNK
     Dates: end: 2018
  3. TREPROSTINIL SODIUM [Suspect]
     Active Substance: TREPROSTINIL SODIUM
     Indication: PULMONARY ARTERIAL HYPERTENSION
     Dosage: UNK (18?54 MICROGRAMS), FOUR TIMES DAILY
     Route: 055
     Dates: start: 20170831

REACTIONS (7)
  - Vision blurred [Unknown]
  - Dizziness [Unknown]
  - Visual impairment [Unknown]
  - Blood pressure abnormal [Unknown]
  - Rash [Unknown]
  - Nausea [Unknown]
  - Headache [Unknown]
